FAERS Safety Report 25717518 (Version 1)
Quarter: 2025Q3

REPORT INFORMATION
  Report Type: Report from Study
  Country: US (occurrence: US)
  Receive Date: 20250822
  Receipt Date: 20250822
  Transmission Date: 20251020
  Serious: Yes (Other)
  Sender: ABBVIE
  Company Number: US-ABBVIE-6424073

PATIENT
  Sex: Female

DRUGS (1)
  1. RINVOQ [Suspect]
     Active Substance: UPADACITINIB
     Indication: Dermatitis atopic
     Route: 048
     Dates: start: 20240513

REACTIONS (5)
  - Loss of consciousness [Recovered/Resolved]
  - Ligament sprain [Recovering/Resolving]
  - Sinusitis [Recovered/Resolved]
  - Cardiac disorder [Unknown]
  - Weight decreased [Unknown]
